FAERS Safety Report 6808180-5 (Version None)
Quarter: 2010Q2

REPORT INFORMATION
  Report Type: 
  Country: None (occurrence: None)
  Receive Date: 20100629
  Receipt Date: 20090303
  Transmission Date: 20101027
  Serious: No
  Sender: FDA-Public Use
  Company Number: US-PFIZER INC-2009181057

PATIENT
  Sex: Female

DRUGS (2)
  1. ALPRAZOLAM [Suspect]
     Dosage: 0.5 MG, 1X/DAY
  2. ORAL CONTRACEPTIVE NOS [Concomitant]

REACTIONS (3)
  - FATIGUE [None]
  - WEIGHT FLUCTUATION [None]
  - WEIGHT INCREASED [None]
